FAERS Safety Report 5823994-6 (Version None)
Quarter: 2008Q3

REPORT INFORMATION
  Report Type: 
  Country: None (occurrence: None)
  Receive Date: 20080728
  Receipt Date: 20080717
  Transmission Date: 20090109
  Serious: Yes (Hospitalization, Other)
  Sender: FDA-Public Use
  Company Number: CA-JNJFOC-20080202834

PATIENT
  Sex: Female
  Weight: 130 kg

DRUGS (5)
  1. REMICADE [Suspect]
     Dosage: 4 TOTAL DOSES, TO THE PRESENT
     Route: 042
  2. REMICADE [Suspect]
     Route: 042
  3. REMICADE [Suspect]
     Route: 042
  4. REMICADE [Suspect]
     Indication: COLITIS ULCERATIVE
     Route: 042
  5. ASACOL [Concomitant]

REACTIONS (3)
  - COLECTOMY [None]
  - INFECTION [None]
  - LUPUS-LIKE SYNDROME [None]
